FAERS Safety Report 23261055 (Version 1)
Quarter: 2023Q4

REPORT INFORMATION
  Report Type: Report from Study
  Country: US (occurrence: US)
  Receive Date: 20231205
  Receipt Date: 20231205
  Transmission Date: 20240109
  Serious: No
  Sender: FDA-Public Use
  Company Number: US-AstraZeneca-CH-00517471A

PATIENT
  Sex: Female

DRUGS (1)
  1. SOLIRIS [Suspect]
     Active Substance: ECULIZUMAB
     Indication: Atypical haemolytic uraemic syndrome
     Dosage: UNK
     Route: 065
     Dates: start: 20220713

REACTIONS (5)
  - Blood pressure increased [Not Recovered/Not Resolved]
  - Migraine [Not Recovered/Not Resolved]
  - Amnesia [Not Recovered/Not Resolved]
  - Mental disorder [Not Recovered/Not Resolved]
  - Fatigue [Not Recovered/Not Resolved]
